FAERS Safety Report 6846335-4 (Version None)
Quarter: 2010Q3

REPORT INFORMATION
  Report Type: 
  Country: None (occurrence: None)
  Receive Date: 20100715
  Receipt Date: 20070917
  Transmission Date: 20110219
  Serious: No
  Sender: FDA-Public Use
  Company Number: US-PFIZER INC-2007077426

PATIENT
  Sex: Female

DRUGS (2)
  1. CHANTIX [Suspect]
     Indication: SMOKING CESSATION THERAPY
     Dates: start: 20070802, end: 20070809
  2. LORTAB [Concomitant]
     Dosage: 10 MG/500 MG

REACTIONS (2)
  - MALAISE [None]
  - UNDERDOSE [None]
